FAERS Safety Report 6820979 (Version 4)
Quarter: 2020Q3

REPORT INFORMATION
  Report Type: Report from Study
  Country: US (occurrence: US)
  Receive Date: 20081125
  Receipt Date: 20090216
  Transmission Date: 20201105
  Serious: Yes (Hospitalization)
  Sender: FDA-Public Use
  Company Number: US-ROCHE-597419

PATIENT
  Age: 77 Year
  Sex: Female
  Weight: 50.3 kg

DRUGS (5)
  1. IBANDRONIC ACID. [Suspect]
     Active Substance: IBANDRONIC ACID
     Indication: OSTEOPOROSIS
     Route: 048
     Dates: start: 200711
  2. TEGRETOL [Concomitant]
     Active Substance: CARBAMAZEPINE
  3. LEXAPRO [Concomitant]
     Active Substance: ESCITALOPRAM OXALATE
     Dosage: DRUG REPORTED AS LEXOPRO
  4. FOSINOPRIL SODIUM. [Concomitant]
     Active Substance: FOSINOPRIL SODIUM
     Dosage: DRUG REPORTED AS FOSNAPRIL
  5. MONOPRIL [Concomitant]
     Active Substance: FOSINOPRIL SODIUM

REACTIONS (4)
  - No adverse event [None]
  - Trigeminal neuralgia [Unknown]
  - Hip fracture [Recovered/Resolved]
  - Wrong technique in product usage process [None]

NARRATIVE: CASE EVENT DATE: 20080501
